FAERS Safety Report 4949365-2 (Version None)
Quarter: 2006Q1

REPORT INFORMATION
  Report Type: 
  Country: None (occurrence: None)
  Receive Date: 20060321
  Receipt Date: 20060307
  Transmission Date: 20060701
  Serious: Yes (Hospitalization)
  Sender: FDA-Public Use
  Company Number: FR-AMGEN-UK171412

PATIENT
  Sex: Male

DRUGS (1)
  1. ARANESP [Suspect]
     Indication: ANAEMIA
     Route: 058

REACTIONS (3)
  - HAEMOLYSIS [None]
  - INAPPROPRIATE SCHEDULE OF DRUG ADMINISTRATION [None]
  - TREATMENT NONCOMPLIANCE [None]
